FAERS Safety Report 12955107 (Version 1)
Quarter: 2016Q4

REPORT INFORMATION
  Report Type: Spontaneous
  Country: US (occurrence: US)
  Receive Date: 20161118
  Receipt Date: 20161118
  Transmission Date: 20170207
  Serious: Yes (Other)
  Sender: FDA-Public Use
  Company Number: US-BAYER-2016-215319

PATIENT
  Age: 39 Year
  Sex: Male

DRUGS (2)
  1. KOGENATE FS [Suspect]
     Active Substance: ANTIHEMOPHILIC FACTOR, HUMAN RECOMBINANT
     Indication: PROPHYLAXIS
     Dosage: ON DEMAND THERAPY
  2. KOVALTRY [Suspect]
     Active Substance: ANTIHEMOPHILIC FACTOR, HUMAN RECOMBINANT
     Indication: PROPHYLAXIS

REACTIONS (5)
  - Haemarthrosis [Unknown]
  - Arthralgia [Unknown]
  - Knee arthroplasty [Unknown]
  - Joint range of motion decreased [Unknown]
  - Haemarthrosis [Unknown]

NARRATIVE: CASE EVENT DATE: 2010
